FAERS Safety Report 5614365-6 (Version None)
Quarter: 2008Q1

REPORT INFORMATION
  Report Type: 
  Country: None (occurrence: None)
  Receive Date: 20080205
  Receipt Date: 20080131
  Transmission Date: 20080703
  Serious: No
  Sender: FDA-Public Use
  Company Number: CH-PFIZER INC-2007105232

PATIENT
  Age: 21 Year
  Sex: Female
  Weight: 65 kg

DRUGS (4)
  1. ZITHROMAX [Suspect]
     Indication: SINUSITIS
     Route: 048
     Dates: start: 20070320, end: 20070323
  2. ZITHROMAX [Suspect]
     Indication: RHINITIS
  3. SINUPRET [Concomitant]
     Route: 048
     Dates: start: 20070320, end: 20070323
  4. DAFALGAN [Concomitant]

REACTIONS (1)
  - NO ADVERSE EVENT [None]
